FAERS Safety Report 7128086-4 (Version None)
Quarter: 2010Q4

REPORT INFORMATION
  Report Type: 
  Country: None (occurrence: None)
  Receive Date: 20101130
  Receipt Date: 20101125
  Transmission Date: 20110411
  Serious: Yes (Life-Threatening)
  Sender: FDA-Public Use
  Company Number: GB-PFIZER INC-2010158183

PATIENT
  Sex: Female
  Weight: 62.3 kg

DRUGS (5)
  1. DEPO-PROVERA [Suspect]
     Indication: OFF LABEL USE
     Dosage: UNK
     Route: 030
     Dates: start: 20040818, end: 20101117
  2. DEPO-PROVERA [Suspect]
     Indication: ENDOMETRIOSIS
  3. CITALOPRAM [Concomitant]
  4. RAMIPRIL [Concomitant]
  5. SALBUTAMOL [Concomitant]

REACTIONS (2)
  - ANAPHYLACTIC REACTION [None]
  - ARTHRALGIA [None]
